FAERS Safety Report 8805903 (Version 1)
Quarter: 2012Q4

REPORT INFORMATION
  Report Type: Spontaneous
  Country: US (occurrence: None)
  Receive Date: 20120918
  Receipt Date: 20120918
  Transmission Date: 20130627
  Serious: Yes (Hospitalization)
  Sender: FDA-Public Use
  Company Number: JPI-P-025184

PATIENT
  Age: 75 Year
  Sex: Male

DRUGS (3)
  1. XYREM [Suspect]
     Indication: DRUG USE FOR UNKNOWN INDICATION
     Route: 048
  2. TESTOSTERONE [Suspect]
     Dosage: ,D)
     Route: 062
  3. TESTOSTERONE [Suspect]
     Dosage: d),
     Route: 062

REACTIONS (3)
  - Cardiac failure congestive [None]
  - Chronic obstructive pulmonary disease [None]
  - Energy increased [None]
